FAERS Safety Report 6831561-0 (Version None)
Quarter: 2010Q3

REPORT INFORMATION
  Report Type: 
  Country: None (occurrence: None)
  Receive Date: 20100712
  Receipt Date: 20100629
  Transmission Date: 20110219
  Serious: Yes (Hospitalization)
  Sender: FDA-Public Use
  Company Number: PHHY2010JP43199

PATIENT
  Sex: Male
  Weight: 53 kg

DRUGS (5)
  1. DIOVAN [Suspect]
     Dosage: 80 MG ONCE DAILY
     Route: 048
     Dates: start: 20080519, end: 20100215
  2. ARTIST [Concomitant]
     Indication: HYPERTENSION
     Dosage: 10 MG
     Route: 048
     Dates: start: 20091109
  3. BUFFERIN [Concomitant]
     Dosage: 81 MG
     Route: 048
     Dates: start: 20080519
  4. MEVALOTIN [Concomitant]
     Dosage: 10 MG
     Route: 048
     Dates: start: 20091109
  5. ULGUT [Suspect]
     Dosage: 200 MG
     Route: 048
     Dates: start: 20091109

REACTIONS (2)
  - AORTIC ANEURYSM RUPTURE [None]
  - BLOOD UREA INCREASED [None]
